FAERS Safety Report 4294802-2 (Version None)
Quarter: 2004Q1

REPORT INFORMATION
  Report Type: 
  Country: None (occurrence: None)
  Receive Date: 20040216
  Receipt Date: 20021217
  Transmission Date: 20041129
  Serious: No
  Sender: FDA-Public Use
  Company Number: US-GLAXOSMITHKLINE-A0389684A

PATIENT
  Age: 19 Year
  Sex: Female
  Weight: 48 kg

DRUGS (3)
  1. LAMICTAL [Suspect]
     Dosage: 425MG PER DAY
     Route: 048
  2. LEVOXYL [Concomitant]
  3. CARBATROL [Concomitant]

REACTIONS (2)
  - GOITRE [None]
  - HYPOTHYROIDISM [None]
